FAERS Safety Report 8446405-3 (Version None)
Quarter: 2012Q2

REPORT INFORMATION
  Report Type: 
  Country: None (occurrence: None)
  Receive Date: 20120618
  Receipt Date: 20120210
  Transmission Date: 20120825
  Serious: No
  Sender: FDA-Public Use
  Company Number: US-TEVA-322495USA

PATIENT
  Sex: Female
  Weight: 63.56 kg

DRUGS (5)
  1. ALPRAZOLAM [Concomitant]
     Indication: ANXIETY
     Dosage: 1-2 QD, PRN
     Route: 048
  2. ACTIQ [Suspect]
     Indication: PAIN
     Dosage: QD, BID
     Route: 002
     Dates: start: 20030101
  3. ACTIQ [Suspect]
     Dosage: QD, BID, TID
     Route: 002
     Dates: start: 20050101, end: 20120207
  4. VICODIN [Concomitant]
     Indication: PAIN
     Dosage: 10/325 QID
     Route: 048
     Dates: start: 20010101, end: 20120207
  5. BUPROPION HCL [Concomitant]
     Indication: DEPRESSION
     Dosage: QD
     Route: 048

REACTIONS (4)
  - OFF LABEL USE [None]
  - PAIN [None]
  - DRUG INEFFECTIVE [None]
  - DRUG PRESCRIBING ERROR [None]
